FAERS Safety Report 8195671-0 (Version None)
Quarter: 2012Q1

REPORT INFORMATION
  Report Type: 
  Country: None (occurrence: None)
  Receive Date: 20120308
  Receipt Date: 20120227
  Transmission Date: 20120608
  Serious: Yes (Hospitalization, Disabling, Other)
  Sender: FDA-Public Use
  Company Number: US-ELI_LILLY_AND_COMPANY-US201111007158

PATIENT

DRUGS (7)
  1. CYMBALTA [Suspect]
     Indication: FIBROMYALGIA
     Dosage: 60 MG, QD
     Dates: start: 20090101
  2. VICODIN [Concomitant]
  3. CYMBALTA [Suspect]
     Dosage: 20 MG, UNK
  4. CYMBALTA [Suspect]
     Dosage: 60 MG, QD
  5. CYMBALTA [Suspect]
     Dosage: 30 MG, QD
  6. CYMBALTA [Suspect]
     Dosage: 90 MG, QD
  7. ANTIHYPERTENSIVES [Concomitant]
     Dosage: UNK

REACTIONS (34)
  - DRUG WITHDRAWAL SYNDROME [None]
  - ABDOMINAL DISCOMFORT [None]
  - PERSONALITY CHANGE [None]
  - HOT FLUSH [None]
  - DRUG INEFFECTIVE [None]
  - DIZZINESS [None]
  - DIARRHOEA [None]
  - CONTUSION [None]
  - HOSPITALISATION [None]
  - BLOOD PRESSURE INCREASED [None]
  - MUSCLE SPASMS [None]
  - VISION BLURRED [None]
  - RESTLESSNESS [None]
  - TINNITUS [None]
  - MEMORY IMPAIRMENT [None]
  - FATIGUE [None]
  - CONVULSION [None]
  - MOOD SWINGS [None]
  - PARAESTHESIA [None]
  - IRRITABILITY [None]
  - MALAISE [None]
  - INSOMNIA [None]
  - URINE ABNORMALITY [None]
  - DRUG INTOLERANCE [None]
  - NAUSEA [None]
  - VOMITING [None]
  - DYSURIA [None]
  - WEIGHT DECREASED [None]
  - PANIC ATTACK [None]
  - MUSCULOSKELETAL STIFFNESS [None]
  - TREMOR [None]
  - DECREASED ACTIVITY [None]
  - HEADACHE [None]
  - ASTHENIA [None]
